FAERS Safety Report 6643633-4 (Version None)
Quarter: 2010Q1

REPORT INFORMATION
  Report Type: 
  Country: None (occurrence: None)
  Receive Date: 20100320
  Receipt Date: 20100315
  Transmission Date: 20100710
  Serious: Yes (Life-Threatening, Other)
  Sender: FDA-Public Use
  Company Number: NL-JNJFOC-20100202818

PATIENT
  Age: 75 Year
  Sex: Male

DRUGS (2)
  1. TAVANIC [Suspect]
     Indication: UROSEPSIS
     Route: 042
  2. CORDARONE [Concomitant]
     Route: 065

REACTIONS (2)
  - ELECTROCARDIOGRAM QT PROLONGED [None]
  - VENTRICULAR FIBRILLATION [None]
